FAERS Safety Report 5121548-0 (Version None)
Quarter: 2006Q4

REPORT INFORMATION
  Report Type: 
  Country: None (occurrence: None)
  Receive Date: 20061003
  Receipt Date: 20060920
  Transmission Date: 20070319
  Serious: Yes (Hospitalization)
  Sender: FDA-Public Use
  Company Number: 2006105827

PATIENT
  Age: 40 Year
  Sex: Female

DRUGS (2)
  1. CELEBRA (CELECOXIB) [Suspect]
     Indication: SPINAL DISORDER
     Dosage: 400 MG (200 MG, 2 IN 1 D), ORAL
     Route: 048
     Dates: start: 20060821, end: 20060821
  2. OMEZOLAN (OMEPRAZOLE) [Concomitant]

REACTIONS (6)
  - ABDOMINAL DISTENSION [None]
  - ABDOMINAL PAIN [None]
  - DEHYDRATION [None]
  - DIARRHOEA [None]
  - NAUSEA [None]
  - SEPSIS [None]
